FAERS Safety Report 4724464-9 (Version None)
Quarter: 2005Q3

REPORT INFORMATION
  Report Type: 
  Country: None (occurrence: None)
  Receive Date: 20050726
  Receipt Date: 20050629
  Transmission Date: 20060218
  Serious: Yes (Other)
  Sender: FDA-Public Use
  Company Number: 2005UW10812

PATIENT
  Sex: Female

DRUGS (1)
  1. ZOLADEX [Suspect]
     Indication: UTERINE HAEMORRHAGE
     Route: 058

REACTIONS (5)
  - GENERALISED OEDEMA [None]
  - HYPERTHYROIDISM [None]
  - INTRAOCULAR PRESSURE INCREASED [None]
  - SWELLING [None]
  - VISUAL DISTURBANCE [None]
